FAERS Safety Report 14408599 (Version 1)
Quarter: 2018Q1

REPORT INFORMATION
  Report Type: Report from Study
  Country: US (occurrence: US)
  Receive Date: 20180118
  Receipt Date: 20180118
  Transmission Date: 20180509
  Serious: Yes (Other)
  Sender: FDA-Public Use
  Company Number: US-AMGEN-USASL2018005659

PATIENT
  Age: 68 Year
  Sex: Female

DRUGS (1)
  1. REPATHA [Suspect]
     Active Substance: EVOLOCUMAB
     Indication: TYPE IIA HYPERLIPIDAEMIA
     Dosage: 140 MG, Q2WK
     Route: 065
     Dates: start: 201707

REACTIONS (6)
  - Skin exfoliation [Unknown]
  - Blood triglycerides increased [Unknown]
  - Vaginal haemorrhage [Unknown]
  - Blood glucose increased [Unknown]
  - Rash [Unknown]
  - Vulvovaginal rash [Not Recovered/Not Resolved]
